FAERS Safety Report 25478608 (Version 2)
Quarter: 2025Q3

REPORT INFORMATION
  Report Type: Spontaneous
  Country: CH (occurrence: CH)
  Receive Date: 20250625
  Receipt Date: 20250709
  Transmission Date: 20251021
  Serious: Yes (Hospitalization, Other)
  Sender: BEIGENE
  Company Number: CH-BEIGENE-BGN-2025-008413

PATIENT
  Age: 68 Year

DRUGS (10)
  1. BRUKINSA [Suspect]
     Active Substance: ZANUBRUTINIB
     Indication: Waldenstrom^s macroglobulinaemia
     Dosage: 80 MILLIGRAM, QID
  2. PANTOPRAZOLE SODIUM [Concomitant]
     Active Substance: PANTOPRAZOLE SODIUM
  3. SODIUM PICOSULFATE [Concomitant]
     Active Substance: SODIUM PICOSULFATE
     Indication: Constipation
  4. ASPIRIN [Concomitant]
     Active Substance: ASPIRIN
     Indication: Prophylaxis
  5. NIMOTOP [Concomitant]
     Active Substance: NIMODIPINE
     Dosage: 30 MILLIGRAM, Q6H
  6. HYDROMORPHONE [Concomitant]
     Active Substance: HYDROMORPHONE
  7. OXYCODONE [Concomitant]
     Active Substance: OXYCODONE
  8. Novalgin [Concomitant]
  9. DAFALGAN [Concomitant]
     Active Substance: ACETAMINOPHEN
  10. ESCITALOPRAM [Concomitant]
     Active Substance: ESCITALOPRAM OXALATE

REACTIONS (3)
  - Subarachnoid haemorrhage [Recovered/Resolved]
  - Cerebral infarction [Recovered/Resolved]
  - Hypokalaemia [Unknown]
